FAERS Safety Report 5229027-7 (Version None)
Quarter: 2007Q1

REPORT INFORMATION
  Report Type: 
  Country: None (occurrence: None)
  Receive Date: 20061201
  Receipt Date: 20060918
  Transmission Date: 20070707
  Serious: No
  Sender: FDA-Public Use
  Company Number: US200609004280

PATIENT
  Age: 48 Year
  Sex: Male

DRUGS (10)
  1. CYMBALTA [Suspect]
     Indication: DEPRESSION
     Dosage: 30 MG, DAILY (1/D)
     Dates: start: 20050101
  2. CYMBALTA [Suspect]
     Indication: DEPRESSION
     Dosage: 30 MG, DAILY (1/D)
     Dates: start: 20060901
  3. TOPROL-XL [Concomitant]
  4. CRESTOR [Concomitant]
  5. TRICOR [Concomitant]
  6. ASPIRIN [Concomitant]
  7. WELLBUTRIN SR [Concomitant]
  8. MULTIVITAMIN [Concomitant]
  9. FISH OIL (FISH OIL) [Concomitant]
  10. GLUCOSAMINE W/CHONDROTIN (CHONDROITIN SULFATE, GLUCOSAMINE) [Concomitant]

REACTIONS (4)
  - ANORGASMIA [None]
  - APPETITE DISORDER [None]
  - EJACULATION DISORDER [None]
  - WEIGHT INCREASED [None]
